FAERS Safety Report 4772935-1 (Version None)
Quarter: 2005Q3

REPORT INFORMATION
  Report Type: 
  Country: None (occurrence: None)
  Receive Date: 20050916
  Receipt Date: 20050914
  Transmission Date: 20060218
  Serious: Yes (Other)
  Sender: FDA-Public Use
  Company Number: TPG2005A00349

PATIENT
  Age: 65 Year
  Sex: Male

DRUGS (10)
  1. LEUPROLIDE ACETATE [Suspect]
     Indication: PROSTATE CANCER
     Dosage: 3.75 MG (3.75 MG, 1 IN 1 M) SUBCUTANEOUS
     Route: 058
     Dates: start: 20040701
  2. DEXAMETHASONE (DEXAMETHASONE) (4 MILLIGRAM, TABLETS) [Concomitant]
  3. CORDAREX (AMIODARONE HYDROCHLORIDE) (200 MILLIGRAM, TABLETS) [Concomitant]
  4. DIGIMERCK MINOR (DIGITOXIN) (0.07 MILLIGRAM, TABLETS) [Concomitant]
  5. ACETYLSALICYLIC ACID (ACETYLSALICYLIC ACID) (100 MILLIGRAM, TABLETS) [Concomitant]
  6. CODEINE SUL TAB [Concomitant]
  7. BERODUAL (DUOVENT) [Concomitant]
  8. SYMBICORT (SYMBICORT TURBUHALER ^DRACO^) (INHALANT) [Concomitant]
  9. PANTOZOL (PANTOPRAZOLE SODIUM) (20 MILLIGRAM, TABLETS) [Concomitant]
  10. PCM (PARACETAMOL) (500 MILLIGRAM, TABLETS) [Concomitant]

REACTIONS (11)
  - ALANINE AMINOTRANSFERASE INCREASED [None]
  - ASPARTATE AMINOTRANSFERASE INCREASED [None]
  - ASTHENIA [None]
  - BLOOD ALKALINE PHOSPHATASE INCREASED [None]
  - BLOOD IMMUNOGLOBULIN A INCREASED [None]
  - FATIGUE [None]
  - GAMMA-GLUTAMYLTRANSFERASE INCREASED [None]
  - HEPATIC CIRRHOSIS [None]
  - HEPATIC STEATOSIS [None]
  - HEPATOCELLULAR DAMAGE [None]
  - HEPATOMEGALY [None]
